FAERS Safety Report 13702107 (Version 1)
Quarter: 2017Q2

REPORT INFORMATION
  Report Type: Spontaneous
  Country: US (occurrence: US)
  Receive Date: 20170629
  Receipt Date: 20170629
  Transmission Date: 20170830
  Serious: No
  Sender: FDA-Public Use
  Company Number: US-JNJFOC-20170404918

PATIENT
  Age: 17 Year
  Sex: Male
  Weight: 68.95 kg

DRUGS (2)
  1. NIZORAL A-D [Suspect]
     Active Substance: KETOCONAZOLE
     Indication: DANDRUFF
     Dosage: DOSE: JUST A PALM SIZE, 2-3 TIMES A WEEK
     Route: 061
     Dates: start: 20161130, end: 20161221
  2. NIZORAL A-D [Suspect]
     Active Substance: KETOCONAZOLE
     Indication: SEBORRHOEA
     Dosage: DOSE: JUST A PALM SIZE, 2-3 TIMES A WEEK
     Route: 061
     Dates: start: 20161130, end: 20161221

REACTIONS (3)
  - Hair texture abnormal [Unknown]
  - Therapeutic response decreased [Unknown]
  - Alopecia [Not Recovered/Not Resolved]
